FAERS Safety Report 23251663 (Version 1)
Quarter: 2023Q4

REPORT INFORMATION
  Report Type: Spontaneous
  Country: US (occurrence: None)
  Receive Date: 20231130
  Receipt Date: 20231130
  Transmission Date: 20240110
  Serious: Yes (Life-Threatening, Hospitalization)
  Sender: FDA-Public Use
  Company Number: None

PATIENT
  Age: 76 Year
  Sex: Male
  Weight: 120 kg

DRUGS (1)
  1. PERFLUTREN [Suspect]
     Active Substance: PERFLUTREN
     Dates: start: 20230921, end: 20230921

REACTIONS (5)
  - Anaphylactic reaction [None]
  - Diarrhoea [None]
  - Unresponsive to stimuli [None]
  - Cardio-respiratory arrest [None]
  - Contrast media reaction [None]

NARRATIVE: CASE EVENT DATE: 20230921
